FAERS Safety Report 13739187 (Version 2)
Quarter: 2018Q2

REPORT INFORMATION
  Report Type: Spontaneous
  Country: US (occurrence: US)
  Receive Date: 20170710
  Receipt Date: 20180627
  Transmission Date: 20180711
  Serious: No
  Sender: FDA-Public Use
  Company Number: US-SAOL THERAPEUTICS-2017SAO00924

PATIENT
  Age: 29 Year
  Sex: Male
  Weight: 89.8 kg

DRUGS (6)
  1. CITALOPRAM [Concomitant]
     Active Substance: CITALOPRAM HYDROBROMIDE
  2. CONCERTA [Concomitant]
     Active Substance: METHYLPHENIDATE HYDROCHLORIDE
  3. UNSPECIFIED MULTIVITAMIN [Concomitant]
  4. GABLOFEN [Suspect]
     Active Substance: BACLOFEN
     Route: 037
  5. GABAPENTIN. [Concomitant]
     Active Substance: GABAPENTIN
  6. UNSPECIFIED VITAMIN D [Concomitant]

REACTIONS (1)
  - Musculoskeletal pain [Not Recovered/Not Resolved]

NARRATIVE: CASE EVENT DATE: 20170413
